FAERS Safety Report 22232751 (Version 1)
Quarter: 2023Q2

REPORT INFORMATION
  Report Type: Spontaneous
  Country: US (occurrence: US)
  Receive Date: 20230420
  Receipt Date: 20230420
  Transmission Date: 20230721
  Serious: Yes (Death, Other)
  Sender: FDA-Public Use
  Company Number: US-AMGEN-USASP2023065049

PATIENT
  Age: 16 Year
  Sex: Male

DRUGS (2)
  1. BEVACIZUMAB [Suspect]
     Active Substance: BEVACIZUMAB
     Indication: Exudative retinopathy
     Dosage: 5 MILLIGRAM PER KILOGRAM OVER 60 TO 90 MINUTES, Q2WK
     Route: 042
  2. BEVACIZUMAB [Suspect]
     Active Substance: BEVACIZUMAB
     Indication: Off label use
     Dosage: 2 MILLIGRAM PER KILOGRAM, Q2WK
     Route: 042

REACTIONS (9)
  - Death [Fatal]
  - Hepatic cirrhosis [Unknown]
  - Gastrointestinal haemorrhage [Unknown]
  - Drug effective for unapproved indication [Unknown]
  - Abdominal pain [Unknown]
  - Cerebral microangiopathy [Unknown]
  - Cerebral calcification [Unknown]
  - Cerebral cyst [Unknown]
  - Off label use [Unknown]
